FAERS Safety Report 12478439 (Version 1)
Quarter: 2016Q2

REPORT INFORMATION
  Report Type: Spontaneous
  Country: US (occurrence: US)
  Receive Date: 20160618
  Receipt Date: 20160618
  Transmission Date: 20160815
  Serious: No
  Sender: FDA-Public Use
  Company Number: US-ASTRAZENECA-2016SE35235

PATIENT
  Sex: Female
  Weight: 51.7 kg

DRUGS (22)
  1. ZOLOFT [Suspect]
     Active Substance: SERTRALINE HYDROCHLORIDE
     Route: 048
  2. ADVAIR HFA [Concomitant]
     Active Substance: FLUTICASONE PROPIONATE\SALMETEROL XINAFOATE
     Dosage: T
     Route: 055
  3. PROVENTIL [Concomitant]
     Active Substance: ALBUTEROL
     Indication: DYSPNOEA
     Dosage: 1 UNIT DOSE BY NEBULIZATION EVERY 4 HOURS AS NEEDED
     Route: 055
  4. FLONASE [Concomitant]
     Active Substance: FLUTICASONE PROPIONATE
     Dosage: 50 MCG  AS NEEDED
  5. NITROSTAT [Suspect]
     Active Substance: NITROGLYCERIN
     Indication: CORONARY ARTERY DISEASE
     Dosage: 1.0DF AS REQUIRED
     Route: 060
     Dates: start: 20160310
  6. LOSARTAN. [Concomitant]
     Active Substance: LOSARTAN
     Route: 048
  7. MIRALAX [Concomitant]
     Active Substance: POLYETHYLENE GLYCOL 3350
     Dosage: 1/2 SCOOP IN AT LEAST 8OZ OF FLUID DAILY BY MOUTH
     Route: 048
  8. PLENDIL [Suspect]
     Active Substance: FELODIPINE
     Route: 048
  9. POTASSIUM CLORIDE [Concomitant]
     Route: 048
  10. VITAMIN D3 [Concomitant]
     Active Substance: CHOLECALCIFEROL
     Dosage: 1000 UNIT 2 PILLS TWO TIMES A DAY
  11. ASPIRIN. [Concomitant]
     Active Substance: ASPIRIN
  12. PRILOSEC OTC [Suspect]
     Active Substance: OMEPRAZOLE MAGNESIUM
     Route: 048
  13. CRESTOR [Suspect]
     Active Substance: ROSUVASTATIN CALCIUM
     Route: 048
  14. SEPTRA [Suspect]
     Active Substance: SULFAMETHOXAZOLE\TRIMETHOPRIM
     Route: 048
  15. SYSTANE (HYPROMELLOSE 2910 (4000 MPA.S)) [Concomitant]
     Active Substance: HYPROMELLOSE 2910 (4000 MPA.S)
     Dosage: 0.4-0.3 % 1 DROP IN TO BOTH EYES EVERY 4 HOURS AS NEEDED
  16. CLARITIN [Concomitant]
     Active Substance: LORATADINE
     Dosage: 10.0MG AS REQUIRED
     Route: 048
  17. SPIRIVA [Suspect]
     Active Substance: TIOTROPIUM BROMIDE MONOHYDRATE
     Dosage: 18 MCG INHALE ONE CAPDULE DAILY
     Route: 048
  18. FUROSEMIDE. [Concomitant]
     Active Substance: FUROSEMIDE
     Dosage: 40.0MG UNKNOWN
     Route: 048
  19. TYLENOL [Concomitant]
     Active Substance: ACETAMINOPHEN
     Indication: PYREXIA
     Dosage: 500.0MG EVERY 4 - 6 HOURS
     Route: 048
  20. COREG [Concomitant]
     Active Substance: CARVEDILOL
     Route: 048
  21. ZESTRIL [Suspect]
     Active Substance: LISINOPRIL
     Route: 048
  22. TYLENOL [Concomitant]
     Active Substance: ACETAMINOPHEN
     Indication: HEADACHE
     Dosage: 500.0MG EVERY 4 - 6 HOURS
     Route: 048

REACTIONS (6)
  - Fatigue [Unknown]
  - Chest pain [Unknown]
  - Secretion discharge [Unknown]
  - Dyspnoea [Unknown]
  - Cough [Unknown]
  - Drug hypersensitivity [Unknown]
